FAERS Safety Report 4823368-0 (Version None)
Quarter: 2005Q4

REPORT INFORMATION
  Report Type: 
  Country: None (occurrence: None)
  Receive Date: 20051108
  Receipt Date: 20051108
  Transmission Date: 20060501
  Serious: No
  Sender: FDA-Public Use
  Company Number: None

PATIENT
  Age: 50 Year
  Sex: Male
  Weight: 140.6151 kg

DRUGS (1)
  1. OXYCODONE WC    80MG         ? [Suspect]
     Indication: SEVER'S DISEASE
     Dosage: 240MG   Q8H   PO
     Route: 048
     Dates: start: 20050910, end: 20051107

REACTIONS (1)
  - DRUG EFFECT DECREASED [None]
